FAERS Safety Report 5097571-1 (Version None)
Quarter: 2006Q3

REPORT INFORMATION
  Report Type: 
  Country: None (occurrence: None)
  Receive Date: 20060901
  Receipt Date: 20060824
  Transmission Date: 20061208
  Serious: Yes (Other)
  Sender: FDA-Public Use
  Company Number: 2006097036

PATIENT
  Age: 56 Year
  Sex: Male
  Weight: 70 kg

DRUGS (1)
  1. LIPITOR [Suspect]
     Indication: HYPERTENSION
     Dosage: 10 MG (10 MG, 1 IN 1 D), ORAL
     Route: 048
     Dates: start: 20060410, end: 20060101

REACTIONS (7)
  - ARTHRALGIA [None]
  - BACK PAIN [None]
  - DYSSTASIA [None]
  - GAIT DISTURBANCE [None]
  - MUSCULOSKELETAL STIFFNESS [None]
  - MYOSITIS [None]
  - PAIN [None]
